FAERS Safety Report 6921338-X (Version None)
Quarter: 2010Q3

REPORT INFORMATION
  Report Type: 
  Country: None (occurrence: None)
  Receive Date: 20100812
  Receipt Date: 20100729
  Transmission Date: 20110219
  Serious: Yes (Hospitalization)
  Sender: FDA-Public Use
  Company Number: FR-ELI_LILLY_AND_COMPANY-FR201007007126

PATIENT
  Sex: Female

DRUGS (3)
  1. ZYPREXA [Suspect]
     Indication: ABNORMAL BEHAVIOUR
     Dosage: UNK, UNKNOWN
     Route: 048
     Dates: start: 20090401, end: 20090701
  2. NOCTRAN 10 [Concomitant]
     Indication: ABNORMAL BEHAVIOUR
     Dosage: 10 MG, DAILY (1/D)
     Route: 048
     Dates: start: 20090301, end: 20090810
  3. DEPAMIDE [Concomitant]
     Indication: ABNORMAL BEHAVIOUR
     Dosage: 900 MG, DAILY (1/D)
     Dates: start: 20090301, end: 20090724

REACTIONS (4)
  - BALANCE DISORDER [None]
  - EXTRAPYRAMIDAL DISORDER [None]
  - OFF LABEL USE [None]
  - URINARY TRACT INFECTION [None]
